FAERS Safety Report 22354221 (Version 14)
Quarter: 2024Q2

REPORT INFORMATION
  Report Type: Spontaneous
  Country: ES (occurrence: ES)
  Receive Date: 20230523
  Receipt Date: 20240510
  Transmission Date: 20240716
  Serious: Yes (Death, Other)
  Sender: FDA-Public Use
  Company Number: ES-BAXTER-2023BAX021834

PATIENT
  Age: 71 Year
  Sex: Female

DRUGS (19)
  1. IMBRUVICA [Suspect]
     Active Substance: IBRUTINIB
     Indication: Diffuse large B-cell lymphoma stage IV
     Dosage: TIME INTERVAL: CYCLICAL: UNK, CYCLIC, 6TH LINE, 4 CYCLES
     Route: 048
  2. DEXAMETHASONE [Suspect]
     Active Substance: DEXAMETHASONE
     Indication: Diffuse large B-cell lymphoma stage IV
     Route: 065
  3. MOSUNETUZUMAB [Suspect]
     Active Substance: MOSUNETUZUMAB
     Indication: Diffuse large B-cell lymphoma
     Dosage: TIME INTERVAL: CYCLICAL: UNK, CYCLIC, 2ND LINE, 8 CYCLES
     Route: 050
  4. EPIRUBICIN [Suspect]
     Active Substance: EPIRUBICIN
     Indication: Diffuse large B-cell lymphoma
     Dosage: TIME INTERVAL: CYCLICAL: UNK, CYCLIC, 2ND LINE, 8 CYCLES AS A PART OF EC REGIMEN
     Route: 065
  5. CYTARABINE [Suspect]
     Active Substance: CYTARABINE
     Indication: Diffuse large B-cell lymphoma stage IV
     Dosage: TIME INTERVAL: CYCLICAL: UNK, CYCLIC, 5TH LINE AS A PART OF R-MTX-ARA-C REGIMEN
     Route: 065
  6. TEMODAL [Suspect]
     Active Substance: TEMOZOLOMIDE
     Indication: Diffuse large B-cell lymphoma
     Dosage: 6TH LINE, 4 CYCLES
     Route: 065
  7. GENOXAL [Suspect]
     Active Substance: CYCLOPHOSPHAMIDE
     Indication: Diffuse large B-cell lymphoma stage IV
     Dosage: 1ST LINE, 6 CYCLES AS A PART OF RCHOP REGIMEN
     Route: 065
  8. GENOXAL [Suspect]
     Active Substance: CYCLOPHOSPHAMIDE
     Indication: Diffuse large B-cell lymphoma stage IV
     Dosage: 2ND LINE, 8 CYCLES AS A PART OF EC REGIMEN
     Route: 065
  9. TRUXIMA [Suspect]
     Active Substance: RITUXIMAB-ABBS
     Indication: Diffuse large B-cell lymphoma stage IV
     Dosage: 1ST LINE, 6 CYCLES AS A PART OF RCHOP REGIMEN
     Route: 065
  10. TRUXIMA [Suspect]
     Active Substance: RITUXIMAB-ABBS
     Indication: Diffuse large B-cell lymphoma stage IV
     Dosage: 3RD LINE, 1 CYCLE, BRIDGE THERAPY
     Route: 065
  11. TRUXIMA [Suspect]
     Active Substance: RITUXIMAB-ABBS
     Indication: Diffuse large B-cell lymphoma stage IV
     Dosage: 5TH LINE AS A PART OF R-MTX-ARA-C REGIMEN
     Route: 065
  12. VINCRISTINE [Suspect]
     Active Substance: VINCRISTINE
     Indication: Diffuse large B-cell lymphoma
     Dosage: 1ST LINE, 6 CYCLES AS A PART OF RCHOP REGIMEN
     Route: 065
  13. PREDNISONE [Suspect]
     Active Substance: PREDNISONE
     Indication: Diffuse large B-cell lymphoma stage IV
     Dosage: UNK, UNKNOWN FREQ.(1ST LINE, 6 CYCLES AS A PART OF RCHOP REGIMEN)
     Route: 065
  14. BENDAMUSTINE HYDROCHLORIDE [Suspect]
     Active Substance: BENDAMUSTINE HYDROCHLORIDE
     Indication: Diffuse large B-cell lymphoma
     Dosage: UNK, CYCLIC 3RD LINE
     Route: 042
  15. BENDAMUSTINE HYDROCHLORIDE [Suspect]
     Active Substance: BENDAMUSTINE HYDROCHLORIDE
     Indication: Diffuse large B-cell lymphoma
     Dosage: TIME INTERVAL: CYCLICAL: UNK, CYCLIC (3RD LINE, 1 CYCLE, BRIDGE THERAPY), DOSAGE FORM: POWDER FOR...
     Route: 042
  16. DOXORUBICIN HYDROCHLORIDE [Suspect]
     Active Substance: DOXORUBICIN HYDROCHLORIDE
     Indication: Diffuse large B-cell lymphoma stage IV
     Dosage: 1ST LINE, 6 CYCLES AS A PART OF RCHOP REGIMEN
     Route: 065
  17. DOXORUBICIN HYDROCHLORIDE [Suspect]
     Active Substance: DOXORUBICIN HYDROCHLORIDE
     Indication: Diffuse large B-cell lymphoma stage IV
     Dosage: TIME INTERVAL: CYCLICAL: UNK, CYCLIC, 1ST LINE, 6 CYCLES AS A PART OF RCHOP REGIMEN
     Route: 065
  18. METHOTREXATE [Suspect]
     Active Substance: METHOTREXATE
     Indication: Diffuse large B-cell lymphoma stage IV
     Dosage: TIME INTERVAL: CYCLICAL: UNK, CYCLIC, 5TH LINE AS A PART OF R-MTX-ARA-C REGIMEN
     Route: 065
  19. METHOTREXATE [Suspect]
     Active Substance: METHOTREXATE
     Indication: Diffuse large B-cell lymphoma stage IV
     Dosage: TIME INTERVAL: CYCLICAL: UNK, CYCLIC, 5TH LINE AS A PART OF R-MTX-ARA-C REGIMEN
     Route: 065

REACTIONS (13)
  - Death [Fatal]
  - Diffuse large B-cell lymphoma [Recovered/Resolved]
  - Neurological symptom [Unknown]
  - Disorientation [Unknown]
  - Malignant neoplasm progression [Recovered/Resolved]
  - Disease progression [Recovered/Resolved]
  - Vasogenic cerebral oedema [Not Recovered/Not Resolved]
  - Diffuse large B-cell lymphoma [Recovered/Resolved]
  - Diffuse large B-cell lymphoma recurrent [Unknown]
  - Malignant neoplasm progression [Recovered/Resolved]
  - Disease progression [Not Recovered/Not Resolved]
  - Vasogenic cerebral oedema [Recovered/Resolved]
  - Therapy partial responder [Unknown]
